FAERS Safety Report 6496441-1 (Version None)
Quarter: 2009Q4

REPORT INFORMATION
  Report Type: 
  Country: None (occurrence: None)
  Receive Date: 20091214
  Receipt Date: 20091201
  Transmission Date: 20100525
  Serious: Yes (Other)
  Sender: FDA-Public Use
  Company Number: CA-MEDIMMUNE-MEDI-0009828

PATIENT
  Sex: Male
  Weight: 3.65 kg

DRUGS (1)
  1. SYNAGIS [Suspect]

REACTIONS (1)
  - OXYGEN SATURATION DECREASED [None]
